FAERS Safety Report 6837092-6 (Version None)
Quarter: 2010Q3

REPORT INFORMATION
  Report Type: 
  Country: None (occurrence: None)
  Receive Date: 20100713
  Receipt Date: 20070503
  Transmission Date: 20110219
  Serious: No
  Sender: FDA-Public Use
  Company Number: US-PFIZER INC-2007037687

PATIENT
  Sex: Female
  Weight: 81.65 kg

DRUGS (9)
  1. CHANTIX [Suspect]
     Indication: SMOKING CESSATION THERAPY
     Dates: start: 20070201
  2. EFFEXOR [Concomitant]
  3. PROTONIX [Concomitant]
  4. ALLEGRA [Concomitant]
     Indication: HYPERSENSITIVITY
  5. VITAMIN C [Concomitant]
  6. VYTORIN [Concomitant]
     Indication: BLOOD CHOLESTEROL INCREASED
  7. ALBUTEROL [Concomitant]
     Indication: HYPERSENSITIVITY
  8. FISH OIL [Concomitant]
  9. NIACIN [Concomitant]

REACTIONS (4)
  - ABDOMINAL PAIN UPPER [None]
  - DRUG ADMINISTRATION ERROR [None]
  - DRUG INEFFECTIVE [None]
  - NAUSEA [None]
